FAERS Safety Report 24219472 (Version 4)
Quarter: 2024Q4

REPORT INFORMATION
  Report Type: Spontaneous
  Country: US (occurrence: US)
  Receive Date: 20240816
  Receipt Date: 20241216
  Transmission Date: 20250114
  Serious: No
  Sender: BRISTOL-MYERS SQUIBB COMPANY
  Company Number: US-BRISTOL-MYERS SQUIBB COMPANY-2024-129765

PATIENT
  Age: 73 Year
  Sex: Female
  Weight: 67.13 kg

DRUGS (2)
  1. REVLIMID [Suspect]
     Active Substance: LENALIDOMIDE
     Indication: Plasma cell myeloma
     Route: 048
  2. REVLIMID [Suspect]
     Active Substance: LENALIDOMIDE
     Dosage: FREQUENCY: DAILY FOR 21 DAYS
     Route: 048

REACTIONS (6)
  - Muscle spasms [Unknown]
  - Gastrooesophageal reflux disease [Recovering/Resolving]
  - Hypotension [Unknown]
  - Memory impairment [Unknown]
  - Product dose omission in error [Unknown]
  - Constipation [Unknown]
